FAERS Safety Report 11292802 (Version 1)
Quarter: 2015Q2

REPORT INFORMATION
  Report Type: Spontaneous
  Country: US (occurrence: None)
  Receive Date: 20150623
  Receipt Date: 20150623
  Transmission Date: 20150821
  Serious: Yes (Other)
  Sender: FDA-Public Use
  Company Number: RB-71936-2015

PATIENT
  Age: 93 Year
  Sex: Female

DRUGS (2)
  1. MUCINEX [Suspect]
     Active Substance: GUAIFENESIN
     Indication: PRODUCT USED FOR UNKNOWN INDICATION
     Dosage: (1 DF 1X, TOOK 1 TABLET; LAST USED THE PRODUCT ON 03-JAN-2015 UNKNOWN)
     Dates: start: 20150103
  2. CIPRO [Concomitant]
     Active Substance: CIPROFLOXACIN HYDROCHLORIDE

REACTIONS (3)
  - Hallucination, visual [None]
  - Insomnia [None]
  - Unevaluable event [None]

NARRATIVE: CASE EVENT DATE: 20150103
